FAERS Safety Report 14534681 (Version 2)
Quarter: 2018Q1

REPORT INFORMATION
  Report Type: Spontaneous
  Country: TH (occurrence: TH)
  Receive Date: 20180215
  Receipt Date: 20180219
  Transmission Date: 20180509
  Serious: Yes (Hospitalization)
  Sender: FDA-Public Use
  Company Number: TH-ASTELLAS-2018US007913

PATIENT
  Age: 14 Year
  Sex: Female

DRUGS (1)
  1. PROGRAF [Suspect]
     Active Substance: TACROLIMUS\TACROLIMUS ANHYDROUS
     Indication: PROPHYLAXIS AGAINST TRANSPLANT REJECTION
     Dosage: UNK, UNKNOWN FREQ.
     Route: 065

REACTIONS (5)
  - Hyperammonaemia [Not Recovered/Not Resolved]
  - Autoimmune haemolytic anaemia [Unknown]
  - Cerebrovascular accident [Unknown]
  - Seizure [Unknown]
  - Platelet count decreased [Unknown]
